FAERS Safety Report 6904588-8 (Version None)
Quarter: 2010Q3

REPORT INFORMATION
  Report Type: 
  Country: None (occurrence: None)
  Receive Date: 20100804
  Receipt Date: 20090616
  Transmission Date: 20110219
  Serious: No
  Sender: FDA-Public Use
  Company Number: US-PFIZER INC-2009196959

PATIENT
  Sex: Male

DRUGS (1)
  1. LYRICA [Suspect]
     Indication: OESOPHAGECTOMY
     Dosage: 50 MG, 1X/DAY
     Route: 048
     Dates: start: 20090407

REACTIONS (2)
  - INCORRECT DOSE ADMINISTERED [None]
  - INSOMNIA [None]
